FAERS Safety Report 23416452 (Version 1)
Quarter: 2024Q1

REPORT INFORMATION
  Report Type: Spontaneous
  Country: US (occurrence: None)
  Receive Date: 20240117
  Receipt Date: 20240117
  Transmission Date: 20240410
  Serious: Yes (unspecified)
  Sender: FDA-Public Use
  Company Number: None

PATIENT
  Sex: 0

DRUGS (1)
  1. PREDNISONE [Suspect]
     Active Substance: PREDNISONE
     Dates: start: 20130101

REACTIONS (6)
  - Insomnia [None]
  - Somnolence [None]
  - Weight increased [None]
  - Peripheral swelling [None]
  - Abdominal distension [None]
  - Irritability [None]

NARRATIVE: CASE EVENT DATE: 20130101
